FAERS Safety Report 4863230-0 (Version None)
Quarter: 2005Q4

REPORT INFORMATION
  Report Type: 
  Country: None (occurrence: None)
  Receive Date: 20051219
  Receipt Date: 20051209
  Transmission Date: 20060501
  Serious: Yes (Hospitalization, Other)
  Sender: FDA-Public Use
  Company Number: 2005167144

PATIENT
  Sex: Female

DRUGS (5)
  1. CELEBREX [Suspect]
     Indication: ARTHRITIS
     Dosage: 200 MG (200 MG, 1 IN 1 D)
     Dates: end: 20050101
  2. MOBIC [Suspect]
     Indication: ARTHRITIS
     Dosage: 1 IN 1 D
     Dates: start: 20050101
  3. ACIPHEX [Concomitant]
  4. TOPROL (METOPROLOL) [Concomitant]
  5. LIPITOR [Concomitant]

REACTIONS (11)
  - ANAEMIA [None]
  - BACK PAIN [None]
  - BLOOD PRESSURE INCREASED [None]
  - DECREASED ACTIVITY [None]
  - HYPERAESTHESIA [None]
  - INFECTION [None]
  - MOBILITY DECREASED [None]
  - NECK INJURY [None]
  - PARAESTHESIA [None]
  - WEIGHT DECREASED [None]
  - WEIGHT INCREASED [None]
